FAERS Safety Report 11984406 (Version 1)
Quarter: 2016Q1

REPORT INFORMATION
  Report Type: Spontaneous
  Country: US (occurrence: US)
  Receive Date: 20160201
  Receipt Date: 20160201
  Transmission Date: 20160526
  Serious: No
  Sender: FDA-Public Use
  Company Number: US-KADMON PHARMACEUTICALS, LLC-KAD201507-002124

PATIENT
  Sex: Female

DRUGS (2)
  1. RIBAVIRIN. [Suspect]
     Active Substance: RIBAVIRIN
     Indication: HEPATITIS C
     Dosage: TABLET
     Route: 048
  2. VIEKIRA PAK [Suspect]
     Active Substance: DASABUVIR\OMBITASVIR\PARITAPREVIR\RITONAVIR
     Indication: HEPATITIS C
     Dosage: TABLET
     Route: 048
     Dates: start: 201504

REACTIONS (8)
  - Anxiety [Unknown]
  - Anaemia [Unknown]
  - Sense of oppression [Unknown]
  - Lacrimation increased [Unknown]
  - Dizziness [Unknown]
  - Insomnia [Unknown]
  - Unevaluable investigation [Unknown]
  - Haemoglobin decreased [Unknown]
